FAERS Safety Report 10070284 (Version 2)
Quarter: 2014Q2

REPORT INFORMATION
  Report Type: Spontaneous
  Country: US (occurrence: US)
  Receive Date: 20140410
  Receipt Date: 20140605
  Transmission Date: 20141212
  Serious: Yes (Death)
  Sender: FDA-Public Use
  Company Number: US-BRISTOL-MYERS SQUIBB COMPANY-20592002

PATIENT
  Age: 33 Year
  Sex: Male

DRUGS (7)
  1. ABILIFY TABS 2 MG [Suspect]
     Indication: MAJOR DEPRESSION
     Route: 048
     Dates: start: 20130426
  2. PERCOCET [Concomitant]
  3. MS CONTIN [Concomitant]
  4. NEURONTIN [Concomitant]
  5. INSULATARD [Concomitant]
  6. CYMBALTA [Concomitant]
  7. XANAX [Concomitant]

REACTIONS (1)
  - Death [Fatal]
